FAERS Safety Report 5924773-1 (Version None)
Quarter: 2008Q4

REPORT INFORMATION
  Report Type: 
  Country: None (occurrence: None)
  Receive Date: 20081017
  Receipt Date: 20081008
  Transmission Date: 20090506
  Serious: Yes (Other)
  Sender: FDA-Public Use
  Company Number: TAP2008Q00902

PATIENT
  Age: 56 Year
  Sex: Male
  Weight: 120.5 kg

DRUGS (6)
  1. PREVACID [Suspect]
     Indication: GASTROOESOPHAGEAL REFLUX DISEASE
     Dosage: 30 MG (30 MG, 1 IN 1 D), PER ORAL
     Route: 048
     Dates: start: 20050421
  2. GLUCOTROL [Suspect]
     Indication: TYPE 2 DIABETES MELLITUS
     Dosage: 5 MG (2.5 MG, 2 IN 1 D), PER ORAL
     Route: 048
     Dates: start: 20050421
  3. VYTORIN [Suspect]
     Indication: BLOOD CHOLESTEROL INCREASED
     Dosage: (, 1 IN 1 D) ,PER ORAL
     Route: 048
     Dates: start: 20050421
  4. NIASPAN [Suspect]
     Indication: BLOOD CHOLESTEROL INCREASED
     Dosage: 500 MG (500 MG, 1 IN 1 D) , PER ORAL
     Route: 048
     Dates: start: 20050421
  5. LASIX [Suspect]
     Indication: FLUID RETENTION
     Dosage: 20-40 MG PRN (AS REQUIRED) ,PER ORAL
     Route: 048
     Dates: start: 20050421
  6. TOPROL-XL [Suspect]
     Dosage: 25 MG (25 MG, 1 IN 1 D) ,PER ORAL
     Route: 048
     Dates: start: 20050421, end: 20071001

REACTIONS (7)
  - ARTHRALGIA [None]
  - EYE HAEMORRHAGE [None]
  - FEELING DRUNK [None]
  - GAIT DISTURBANCE [None]
  - MACULAR OEDEMA [None]
  - VISUAL FIELD DEFECT [None]
  - VISUAL IMPAIRMENT [None]
